FAERS Safety Report 5743648-4 (Version None)
Quarter: 2008Q2

REPORT INFORMATION
  Report Type: 
  Country: None (occurrence: None)
  Receive Date: 20080515
  Receipt Date: 20080108
  Transmission Date: 20081010
  Serious: Yes (Hospitalization)
  Sender: FDA-Public Use
  Company Number: WAES 0801USA02266

PATIENT
  Age: 77 Year
  Sex: Female

DRUGS (12)
  1. HYDRODIURIL [Suspect]
     Indication: BLOOD PRESSURE
     Dosage: 12.5 MG/DAILY/PO
     Route: 048
     Dates: end: 20070501
  2. VAGIFEM [Suspect]
     Dosage: 25 MG/2XW
  3. BACTRIM DS [Suspect]
     Indication: URINARY TRACT INFECTION
  4. ADVIL [Concomitant]
  5. ELAVIL [Concomitant]
  6. LIBRIUM [Concomitant]
  7. LOPRESSOR [Concomitant]
  8. LUMIGAN [Concomitant]
  9. SYNTHROID [Concomitant]
  10. TIAMATE [Concomitant]
  11. ZESTRIL [Concomitant]
  12. NUTRITIONAL SUPPLEMENTS [Concomitant]

REACTIONS (1)
  - PANCREATITIS ACUTE [None]
